FAERS Safety Report 5731300-0 (Version None)
Quarter: 2008Q2

REPORT INFORMATION
  Report Type: 
  Country: None (occurrence: None)
  Receive Date: 20080505
  Receipt Date: 20080410
  Transmission Date: 20081010
  Serious: Yes (Other)
  Sender: FDA-Public Use
  Company Number: CHPA2008CA07335

PATIENT
  Sex: Female

DRUGS (2)
  1. MAALOX UNKNOWN (NCH)(UNKNOWN) UNKNOWN [Suspect]
     Indication: DYSPEPSIA
  2. NEXIUM [Concomitant]

REACTIONS (3)
  - DRUG DEPENDENCE [None]
  - INTENTIONAL DRUG MISUSE [None]
  - NO ADVERSE EVENT [None]
